FAERS Safety Report 16576957 (Version 1)
Quarter: 2019Q3

REPORT INFORMATION
  Report Type: Spontaneous
  Country: US (occurrence: US)
  Receive Date: 20190715
  Receipt Date: 20190715
  Transmission Date: 20191004
  Serious: Yes (Life-Threatening)
  Sender: FDA-Public Use
  Company Number: None

PATIENT
  Age: 67 Year
  Sex: Male

DRUGS (2)
  1. TACROLIMUS. [Suspect]
     Active Substance: TACROLIMUS
     Indication: RENAL TRANSPLANT
     Dosage: ?          OTHER FREQUENCY:2;?
     Route: 048
     Dates: start: 20171130
  2. MYCOPHENOLATE 250MG BID [Concomitant]

REACTIONS (2)
  - Neoplasm malignant [None]
  - Arm amputation [None]

NARRATIVE: CASE EVENT DATE: 20190713
